FAERS Safety Report 8716127 (Version 2)
Quarter: 2012Q4

REPORT INFORMATION
  Report Type: 
  Country: HU (occurrence: HU)
  Receive Date: 20120809
  Receipt Date: 20120831
  Transmission Date: 20130627
  Serious: Yes (Death, Hospitalization, Other)
  Sender: FDA-Public Use
  Company Number: HU-BAXTER-2012BAX013684

PATIENT
  Age: 62 Year
  Sex: Female

DRUGS (3)
  1. DIANEAL WITH DEXTROSE [Suspect]
     Indication: PERITONEAL DIALYSIS
     Route: 033
     Dates: start: 20120614
  2. DIANEAL WITH DEXTROSE [Suspect]
     Route: 033
     Dates: start: 20120713
  3. EXTRANEAL [Suspect]
     Indication: PERITONEAL DIALYSIS
     Route: 033
     Dates: start: 20120614

REACTIONS (3)
  - Death [Fatal]
  - Hypertensive crisis [Not Recovered/Not Resolved]
  - Noninfectious peritonitis [Not Recovered/Not Resolved]
